FAERS Safety Report 7051305-X (Version None)
Quarter: 2010Q4

REPORT INFORMATION
  Report Type: 
  Country: None (occurrence: None)
  Receive Date: 20101019
  Receipt Date: 20101013
  Transmission Date: 20110411
  Serious: Yes (Other)
  Sender: FDA-Public Use
  Company Number: ES-JNJFOC-20101001809

PATIENT
  Age: 71 Year
  Sex: Female
  Weight: 43 kg

DRUGS (7)
  1. REMICADE [Suspect]
     Indication: COLITIS ULCERATIVE
     Dosage: 230 MG  2 INDUCTION DOSES RECEIVED
     Route: 042
  2. REMICADE [Suspect]
     Dosage: 2ND INDUCTION DOSE
     Route: 042
  3. IMUREL [Concomitant]
     Indication: COLITIS ULCERATIVE
     Route: 048
  4. MEZAVANT [Concomitant]
     Indication: COLITIS ULCERATIVE
  5. PENTASA [Concomitant]
     Indication: COLITIS ULCERATIVE
  6. CLIPPER [Concomitant]
     Indication: COLITIS ULCERATIVE
     Dosage: 1-2 TABLETS   INTERMITTENT USE
     Route: 048
  7. URBASON [Concomitant]
     Indication: COLITIS ULCERATIVE
     Dosage: TAPERD DOSE INITIAL DOSE 0.8-1 MG/KG INTERMITTENT IN 2009-2010

REACTIONS (1)
  - SQUAMOUS CELL CARCINOMA OF THE CERVIX [None]
